FAERS Safety Report 4488733-2 (Version None)
Quarter: 2004Q4

REPORT INFORMATION
  Report Type: 
  Country: None (occurrence: None)
  Receive Date: 20041025
  Receipt Date: 20041012
  Transmission Date: 20050328
  Serious: Yes (Disabling)
  Sender: FDA-Public Use
  Company Number: 2004077798

PATIENT
  Age: 62 Year
  Sex: Female

DRUGS (1)
  1. GABAPENTIN [Suspect]
     Indication: OSTEOARTHRITIS
     Dosage: ORAL
     Route: 048

REACTIONS (3)
  - CRYING [None]
  - FEAR [None]
  - HALLUCINATION [None]
